FAERS Safety Report 5662694-2 (Version None)
Quarter: 2008Q1

REPORT INFORMATION
  Report Type: 
  Country: None (occurrence: None)
  Receive Date: 20080313
  Receipt Date: 20080305
  Transmission Date: 20080703
  Serious: Yes (Death, Hospitalization, Other)
  Sender: FDA-Public Use
  Company Number: PHHY2008JP02278

PATIENT
  Age: 55 Year
  Sex: Male

DRUGS (6)
  1. NEORAL [Suspect]
     Indication: CORD BLOOD TRANSPLANT THERAPY
     Route: 048
  2. METHOTREXATE [Concomitant]
     Indication: CORD BLOOD TRANSPLANT THERAPY
     Dates: start: 20050801
  3. METHYLPREDNISOLONE [Concomitant]
     Dosage: 2 MG/KG, UNK
     Dates: start: 20050901
  4. FLUDARABINE [Concomitant]
  5. CYCLOPHOSPHAMIDE [Concomitant]
  6. IRRADIATION [Concomitant]

REACTIONS (16)
  - ACUTE GRAFT VERSUS HOST DISEASE [None]
  - BLAST CELL COUNT INCREASED [None]
  - CHOLECYSTITIS INFECTIVE [None]
  - CYTOGENETIC ABNORMALITY [None]
  - CYTOMEGALOVIRUS ENTEROCOLITIS [None]
  - ENGRAFTMENT SYNDROME [None]
  - HERPES ZOSTER [None]
  - LEUKAEMIA [None]
  - MARROW HYPERPLASIA [None]
  - MELAENA [None]
  - PANCYTOPENIA [None]
  - PLATELET COUNT DECREASED [None]
  - PYREXIA [None]
  - THROMBOTIC MICROANGIOPATHY [None]
  - TREATMENT RELATED SECONDARY MALIGNANCY [None]
  - WEIGHT INCREASED [None]
